FAERS Safety Report 5838719-8 (Version None)
Quarter: 2008Q3

REPORT INFORMATION
  Report Type: 
  Country: None (occurrence: None)
  Receive Date: 20080808
  Receipt Date: 20080731
  Transmission Date: 20090109
  Serious: Yes (Hospitalization)
  Sender: FDA-Public Use
  Company Number: B0531880A

PATIENT
  Age: 54 Year
  Sex: Female
  Weight: 70.5 kg

DRUGS (4)
  1. LAPATINIB [Suspect]
     Indication: BREAST CANCER
     Route: 048
     Dates: start: 20080730
  2. TRASTUZUMAB [Suspect]
     Indication: BREAST CANCER
     Route: 042
     Dates: start: 20080730
  3. PACLITAXEL [Suspect]
     Indication: BREAST CANCER
     Dates: start: 20080730
  4. OXAZEPAM [Concomitant]
     Route: 048
     Dates: start: 20060101

REACTIONS (3)
  - ADVERSE DRUG REACTION [None]
  - FEELING COLD [None]
  - PYREXIA [None]
